FAERS Safety Report 6128767-5 (Version None)
Quarter: 2009Q1

REPORT INFORMATION
  Report Type: 
  Country: None (occurrence: None)
  Receive Date: 20090320
  Receipt Date: 20090309
  Transmission Date: 20090719
  Serious: Yes (Hospitalization)
  Sender: FDA-Public Use
  Company Number: 1000005247

PATIENT
  Age: 27 Year
  Sex: Female

DRUGS (5)
  1. CITALOPRAM HYDROBROMIDE [Suspect]
     Indication: PHOBIA OF EXAMS
     Dosage: 20 MG (20 MG,1 IN 1 D),ORAL
     Route: 048
     Dates: start: 20090207, end: 20090207
  2. CITALOPRAM HYDROBROMIDE [Suspect]
     Indication: PHOBIA OF EXAMS
     Dosage: 10 MG (10 MG,1 IN 1 D),ORAL
     Route: 048
     Dates: start: 20090208, end: 20090210
  3. ALVESCO (SOLUTION) [Concomitant]
  4. OXIS (POWDER) [Concomitant]
  5. SALBUTAMOL (SOLUTION) [Concomitant]

REACTIONS (6)
  - CARDIOVASCULAR INSUFFICIENCY [None]
  - DEPRESSED LEVEL OF CONSCIOUSNESS [None]
  - DIZZINESS [None]
  - NAUSEA [None]
  - PANIC ATTACK [None]
  - TACHYCARDIA [None]
